FAERS Safety Report 15287853 (Version 1)
Quarter: 2018Q3

REPORT INFORMATION
  Report Type: Spontaneous
  Country: US (occurrence: US)
  Receive Date: 20180802
  Receipt Date: 20180802
  Transmission Date: 20181010
  Serious: Yes (Life-Threatening)
  Sender: FDA-Public Use
  Company Number: None

PATIENT
  Age: 54 Year
  Sex: Female
  Weight: 67.5 kg

DRUGS (1)
  1. CYMBALTA [Suspect]
     Active Substance: DULOXETINE HYDROCHLORIDE
     Indication: PAIN
     Dosage: ?          QUANTITY:60 TABLET(S);?
     Route: 048

REACTIONS (11)
  - Memory impairment [None]
  - Thirst [None]
  - Heart rate irregular [None]
  - Swelling face [None]
  - Blood pressure increased [None]
  - Feeling abnormal [None]
  - Acarodermatitis [None]
  - Hypersensitivity [None]
  - Swollen tongue [None]
  - Parasite blood test positive [None]
  - Pharyngeal oedema [None]

NARRATIVE: CASE EVENT DATE: 20171207
